FAERS Safety Report 6701656-0 (Version None)
Quarter: 2010Q2

REPORT INFORMATION
  Report Type: 
  Country: None (occurrence: None)
  Receive Date: 20100429
  Receipt Date: 20100422
  Transmission Date: 20101027
  Serious: Yes (Other)
  Sender: FDA-Public Use
  Company Number: US-BAYER-201014629BCC

PATIENT
  Age: 67 Year
  Sex: Male
  Weight: 100 kg

DRUGS (16)
  1. ASPIRIN [Suspect]
     Indication: DRUG USE FOR UNKNOWN INDICATION
     Route: 065
  2. NAPROXEN [Suspect]
     Indication: DRUG USE FOR UNKNOWN INDICATION
     Route: 065
  3. PLAVIX [Suspect]
     Indication: DRUG USE FOR UNKNOWN INDICATION
     Route: 048
  4. OMEPRAZOLE [Suspect]
     Indication: DRUG USE FOR UNKNOWN INDICATION
     Route: 065
  5. DEXAMETHASONE [Suspect]
     Indication: PROSTATE CANCER
     Route: 065
     Dates: start: 20100204
  6. DOCETAXEL [Suspect]
     Indication: PROSTATE CANCER
     Dosage: TOTAL DAILY DOSE: 160 MG
     Route: 041
     Dates: start: 20100204, end: 20100204
  7. ATRASENTAN OR PLACEBO [Suspect]
     Indication: PROSTATE CANCER
     Dosage: EVERY CYCLE
     Route: 048
     Dates: start: 20100204, end: 20100215
  8. CARVEDILOL [Suspect]
     Indication: DRUG USE FOR UNKNOWN INDICATION
     Route: 065
  9. LISINOPRIL [Suspect]
     Indication: DRUG USE FOR UNKNOWN INDICATION
     Route: 065
  10. PREDNISONE [Concomitant]
     Route: 065
     Dates: start: 20100204
  11. ACETAMINOPHEN W/ PROPOXYPHENE HCL [Concomitant]
     Route: 065
  12. MORNIFLUMATE [Concomitant]
     Route: 065
  13. LEUPRORELIN [Concomitant]
     Route: 065
  14. ACETATE [Concomitant]
     Route: 065
  15. FLOMAX [Concomitant]
     Route: 065
  16. FOLAMIN [Concomitant]
     Route: 065

REACTIONS (8)
  - ASTHENIA [None]
  - FAECES DISCOLOURED [None]
  - HYPOGLYCAEMIA [None]
  - HYPOTENSION [None]
  - LARGE INTESTINAL HAEMORRHAGE [None]
  - ORTHOSTATIC INTOLERANCE [None]
  - PALLOR [None]
  - VOMITING [None]
